FAERS Safety Report 12879243 (Version 1)
Quarter: 2016Q4

REPORT INFORMATION
  Report Type: Spontaneous
  Country: CA (occurrence: CA)
  Receive Date: 20161025
  Receipt Date: 20161025
  Transmission Date: 20170207
  Serious: Yes (Hospitalization, Other)
  Sender: FDA-Public Use
  Company Number: CA-ROCHE-1844697

PATIENT
  Age: 59 Year
  Sex: Female

DRUGS (4)
  1. PREDNISONE. [Concomitant]
     Active Substance: PREDNISONE
     Route: 048
  2. NAPROSYN [Concomitant]
     Active Substance: NAPROXEN
     Dosage: PATIENT STATED SHE RARELY TAKES THE NAPROSYN
     Route: 048
  3. RITUXAN [Suspect]
     Active Substance: RITUXIMAB
     Indication: RHEUMATOID ARTHRITIS
     Route: 065
     Dates: start: 201305, end: 201603
  4. TYLENOL WITH CODEINE [Concomitant]
     Active Substance: ACETAMINOPHEN\CODEINE PHOSPHATE
     Indication: PAIN
     Route: 065

REACTIONS (6)
  - Joint swelling [Unknown]
  - Arthralgia [Unknown]
  - Gait disturbance [Unknown]
  - Drug ineffective [Unknown]
  - Dyspnoea [Unknown]
  - Asthenia [Unknown]
